FAERS Safety Report 11185612 (Version 1)
Quarter: 2015Q2

REPORT INFORMATION
  Report Type: Spontaneous
  Country: US (occurrence: US)
  Receive Date: 20150612
  Receipt Date: 20150612
  Transmission Date: 20150821
  Serious: Yes (Hospitalization, Other)
  Sender: FDA-Public Use
  Company Number: US-TEVA-569860USA

PATIENT
  Sex: Female

DRUGS (12)
  1. ALBUTEROL SULFATE. [Suspect]
     Active Substance: ALBUTEROL SULFATE
     Indication: ASTHMA
     Route: 065
  2. ZYRTEC [Concomitant]
     Active Substance: CETIRIZINE HYDROCHLORIDE
  3. PROAIR HFA [Suspect]
     Active Substance: ALBUTEROL SULFATE
     Route: 065
  4. VENTOLIN [Suspect]
     Active Substance: ALBUTEROL SULFATE
     Indication: ASTHMA
     Route: 065
  5. DUONEB [Concomitant]
     Active Substance: ALBUTEROL SULFATE\IPRATROPIUM BROMIDE
  6. XOLAIR [Concomitant]
     Active Substance: OMALIZUMAB
  7. PREDNISONE. [Concomitant]
     Active Substance: PREDNISONE
  8. FLUTICASONE [Concomitant]
     Active Substance: FLUTICASONE\FLUTICASONE PROPIONATE
  9. PROVENTIL [Suspect]
     Active Substance: ALBUTEROL
     Indication: ASTHMA
     Route: 065
  10. ADVAIR HFA [Suspect]
     Active Substance: FLUTICASONE PROPIONATE\SALMETEROL XINAFOATE
     Indication: PRODUCT USED FOR UNKNOWN INDICATION
     Route: 065
     Dates: start: 2002
  11. SINGULAIR [Concomitant]
     Active Substance: MONTELUKAST SODIUM
  12. METFORMIN [Concomitant]
     Active Substance: METFORMIN HYDROCHLORIDE

REACTIONS (8)
  - Asthma [Unknown]
  - Blindness [Not Recovered/Not Resolved]
  - Malaise [Not Recovered/Not Resolved]
  - Impaired work ability [Not Recovered/Not Resolved]
  - Decreased activity [Not Recovered/Not Resolved]
  - Pneumonia [Unknown]
  - Eye pain [Not Recovered/Not Resolved]
  - Eye disorder [Not Recovered/Not Resolved]
